FAERS Safety Report 12633468 (Version 1)
Quarter: 2016Q3

REPORT INFORMATION
  Report Type: Spontaneous
  Country: JP (occurrence: JP)
  Receive Date: 20160809
  Receipt Date: 20160809
  Transmission Date: 20161109
  Serious: Yes (Congenital Anomaly, Other)
  Sender: FDA-Public Use
  Company Number: JP-BAYER-2016-147814

PATIENT
  Sex: Female
  Weight: 2.17 kg

DRUGS (2)
  1. ACETYLSALICYLIC ACID({=100 MG) [Suspect]
     Active Substance: ASPIRIN
     Dosage: UNK
     Route: 064
  2. ACETYLSALICYLIC ACID({=100 MG) [Suspect]
     Active Substance: ASPIRIN
     Dosage: UNK
     Route: 064

REACTIONS (8)
  - Shock [None]
  - Foetal exposure during pregnancy [Recovered/Resolved]
  - Disseminated intravascular coagulation [Recovering/Resolving]
  - Low birth weight baby [None]
  - Premature baby [None]
  - Cardiac tamponade [None]
  - Platelet count decreased [None]
  - Chromosomal deletion [None]
